FAERS Safety Report 19983227 (Version 1)
Quarter: 2021Q4

REPORT INFORMATION
  Report Type: Spontaneous
  Country: PT (occurrence: PT)
  Receive Date: 20211021
  Receipt Date: 20211021
  Transmission Date: 20220303
  Serious: Yes (Disabling)
  Sender: FDA-Public Use
  Company Number: PT-ZENTIVA-2021-ZT-008208

PATIENT
  Age: 48 Year
  Sex: Male

DRUGS (1)
  1. TADALAFIL [Suspect]
     Active Substance: TADALAFIL
     Indication: Erectile dysfunction
     Dosage: 25 MILLIGRAM, QD
     Route: 048

REACTIONS (5)
  - Transient global amnesia [Recovering/Resolving]
  - Memory impairment [Recovering/Resolving]
  - Irritability [Recovered/Resolved]
  - Overdose [Recovered/Resolved]
  - Drug ineffective [Recovered/Resolved]
